FAERS Safety Report 19981126 (Version 1)
Quarter: 2021Q4

REPORT INFORMATION
  Report Type: Spontaneous
  Country: US (occurrence: US)
  Receive Date: 20211021
  Receipt Date: 20211021
  Transmission Date: 20220303
  Serious: No
  Sender: FDA-Public Use
  Company Number: US-PFIZER INC-202101238022

PATIENT
  Age: 60 Year
  Sex: Female
  Weight: 74.38 kg

DRUGS (6)
  1. IBRANCE [Suspect]
     Active Substance: PALBOCICLIB
     Indication: Breast cancer female
     Dosage: 100 MG, CYCLIC (DAILY ON DAYS 1-21 EVERY 28 DAYS)
     Route: 048
     Dates: start: 20210701
  2. FASLODEX [Concomitant]
     Active Substance: FULVESTRANT
     Dosage: (250 MG/5 ML SYRINGE)
  3. CLARITIN-D 12 HOUR [Concomitant]
     Active Substance: LORATADINE\PSEUDOEPHEDRINE SULFATE
     Dosage: UNK
  4. POTASSIUM [Concomitant]
     Active Substance: POTASSIUM
     Dosage: 99 MG
  5. IRON [Concomitant]
     Active Substance: IRON
     Dosage: 45 MG
  6. CITALOPRAM [Concomitant]
     Active Substance: CITALOPRAM HYDROBROMIDE
     Dosage: 10 MG

REACTIONS (1)
  - White blood cell count decreased [Unknown]
